FAERS Safety Report 15680357 (Version 1)
Quarter: 2018Q4

REPORT INFORMATION
  Report Type: Spontaneous
  Country: US (occurrence: US)
  Receive Date: 20181120
  Receipt Date: 20181120
  Transmission Date: 20190205
  Serious: No
  Sender: FDA-Public Use
  Company Number: None

PATIENT
  Sex: Male

DRUGS (2)
  1. ZYPREXA [Suspect]
     Active Substance: OLANZAPINE
  2. RISPERIDONE. [Suspect]
     Active Substance: RISPERIDONE

REACTIONS (2)
  - Feeling abnormal [None]
  - Loss of personal independence in daily activities [None]
